FAERS Safety Report 7248353-3 (Version None)
Quarter: 2011Q1

REPORT INFORMATION
  Report Type: 
  Country: None (occurrence: None)
  Receive Date: 20110127
  Receipt Date: 20110125
  Transmission Date: 20110831
  Serious: Yes (Death)
  Sender: FDA-Public Use
  Company Number: PHHY2011MY05090

PATIENT
  Sex: Male

DRUGS (2)
  1. GLEEVEC [Suspect]
     Indication: GASTROINTESTINAL STROMAL TUMOUR
     Dosage: UNK
     Dates: start: 20050101
  2. GLEEVEC [Suspect]
     Dosage: 400 MG, DAILY
     Dates: start: 20101209

REACTIONS (2)
  - GASTROINTESTINAL STROMAL TUMOUR [None]
  - NEOPLASM MALIGNANT [None]
